FAERS Safety Report 25538849 (Version 1)
Quarter: 2025Q3

REPORT INFORMATION
  Report Type: Spontaneous
  Country: US (occurrence: US)
  Receive Date: 20250710
  Receipt Date: 20250710
  Transmission Date: 20251021
  Serious: Yes (Life-Threatening, Other)
  Sender: DIFGEN PHARMACEUTICALS LLC
  Company Number: US-Difgen-012063

PATIENT
  Age: 52 Year
  Sex: Female
  Weight: 64 kg

DRUGS (2)
  1. MIDAZOLAM [Concomitant]
     Active Substance: MIDAZOLAM
     Indication: Sedative therapy
     Route: 042
  2. FENTANYL [Suspect]
     Active Substance: FENTANYL
     Indication: Sedative therapy
     Route: 040

REACTIONS (1)
  - Chest wall rigidity [Recovered/Resolved]
